FAERS Safety Report 25628246 (Version 1)
Quarter: 2025Q3

REPORT INFORMATION
  Report Type: Spontaneous
  Country: GB (occurrence: GB)
  Receive Date: 20250731
  Receipt Date: 20250731
  Transmission Date: 20251021
  Serious: Yes (Life-Threatening, Hospitalization, Disabling, Other)
  Sender: ELI LILLY AND COMPANY
  Company Number: None

PATIENT
  Age: 31 Year
  Sex: Male
  Weight: 93 kg

DRUGS (2)
  1. MOUNJARO [Suspect]
     Active Substance: TIRZEPATIDE
     Indication: Type 2 diabetes mellitus
     Dosage: 5 MG, WEEKLY (1/W)
     Route: 065
     Dates: start: 20250211, end: 20250621
  2. METFORMIN [Concomitant]
     Active Substance: METFORMIN HYDROCHLORIDE
     Indication: Diabetes mellitus
     Dates: start: 20210212

REACTIONS (7)
  - Suicide attempt [Recovered/Resolved with Sequelae]
  - Mental disorder [Unknown]
  - Thinking abnormal [Unknown]
  - Limb crushing injury [Unknown]
  - Limb injury [Unknown]
  - Peripheral nerve injury [Unknown]
  - Muscle injury [Unknown]

NARRATIVE: CASE EVENT DATE: 20250621
